FAERS Safety Report 25961587 (Version 1)
Quarter: 2025Q4

REPORT INFORMATION
  Report Type: Spontaneous
  Country: EU (occurrence: EU)
  Receive Date: 20251027
  Receipt Date: 20251027
  Transmission Date: 20260118
  Serious: No
  Sender: ALKEM
  Company Number: EU-ALKEM LABORATORIES LIMITED-DE-ALKEM-2025-08829

PATIENT
  Age: 34 Year
  Sex: Male

DRUGS (3)
  1. ESLICARBAZEPINE [Suspect]
     Active Substance: ESLICARBAZEPINE
     Indication: Partial seizures
     Dosage: 800 MG/DAY, BID
     Route: 065
  2. ESLICARBAZEPINE [Suspect]
     Active Substance: ESLICARBAZEPINE
     Dosage: 2400 MG/DAY
     Route: 065
  3. BRIVARACETAM [Suspect]
     Active Substance: BRIVARACETAM
     Indication: Partial seizures
     Dosage: 200 MG/DAY
     Route: 065

REACTIONS (1)
  - Drug ineffective [Unknown]
